FAERS Safety Report 7294141-1 (Version None)
Quarter: 2011Q1

REPORT INFORMATION
  Report Type: 
  Country: None (occurrence: None)
  Receive Date: 20110215
  Receipt Date: 20110202
  Transmission Date: 20110831
  Serious: Yes (Other)
  Sender: FDA-Public Use
  Company Number: GB-MYLANLABS-2011S1002164

PATIENT
  Age: 63 Year
  Sex: Male

DRUGS (4)
  1. TACROLIMUS [Suspect]
     Indication: RENAL TRANSPLANT
  2. AZATHIOPRINE [Suspect]
     Indication: RENAL TRANSPLANT
  3. BASILIXIMAB [Suspect]
     Indication: RENAL TRANSPLANT
  4. CORTICOSTEROID NOS [Suspect]
     Indication: RENAL TRANSPLANT

REACTIONS (1)
  - APLASIA PURE RED CELL [None]
